FAERS Safety Report 10017459 (Version 1)
Quarter: 2014Q1

REPORT INFORMATION
  Report Type: Spontaneous
  Country: US (occurrence: US)
  Receive Date: 20140318
  Receipt Date: 20140318
  Transmission Date: 20141002
  Serious: Yes (Hospitalization, Other)
  Sender: FDA-Public Use
  Company Number: US-AMGEN-USASP2014018635

PATIENT
  Age: 65 Year
  Sex: Female

DRUGS (1)
  1. ENBREL [Suspect]
     Indication: RHEUMATOID ARTHRITIS
     Dosage: 50 MG, QWK
     Route: 065
     Dates: start: 20130101, end: 201402

REACTIONS (6)
  - Asthenia [Recovered/Resolved]
  - Abasia [Recovered/Resolved]
  - Ulcer haemorrhage [Recovered/Resolved]
  - Rectal polyp [Recovered/Resolved]
  - Mobility decreased [Recovered/Resolved]
  - Malaise [Not Recovered/Not Resolved]
